FAERS Safety Report 10177991 (Version 1)
Quarter: 2014Q2

REPORT INFORMATION
  Report Type: Report from Study
  Country: AU (occurrence: AU)
  Receive Date: 20140516
  Receipt Date: 20140516
  Transmission Date: 20141212
  Serious: Yes (Hospitalization)
  Sender: FDA-Public Use
  Company Number: AU-009507513-1405AUS006678

PATIENT
  Age: 74 Year
  Sex: Male
  Weight: 112 kg

DRUGS (17)
  1. DEXAMETHASONE [Suspect]
     Indication: PLASMA CELL MYELOMA
     Dosage: 20 MG, FREQUENCY UNKNOWN
     Route: 048
     Dates: start: 20140311, end: 20140401
  2. ABT-199 [Suspect]
     Indication: PLASMA CELL MYELOMA
     Dosage: 100 MG, QD
     Route: 048
     Dates: start: 20140311
  3. BORTEZOMIB [Suspect]
     Indication: PLASMA CELL MYELOMA
     Dosage: 1.3 MG/M2, FREQUENCY UNKNOWN
     Route: 058
     Dates: start: 20140311
  4. ALLOPURINOL [Concomitant]
     Indication: TUMOUR LYSIS SYNDROME
     Dosage: UNK
     Route: 048
  5. ALLOPURINOL [Concomitant]
     Indication: PROPHYLAXIS
  6. SODIUM CHLORIDE [Concomitant]
     Indication: TUMOUR LYSIS SYNDROME
     Dosage: UNK
     Route: 042
  7. SODIUM CHLORIDE [Concomitant]
     Indication: PROPHYLAXIS AGAINST DEHYDRATION
  8. NEXIUM [Concomitant]
     Indication: PROPHYLAXIS AGAINST GASTROINTESTINAL ULCER
     Dosage: 20 MG, QD
     Dates: start: 20130901
  9. ROSUVASTATIN CALCIUM [Concomitant]
     Indication: HYPERLIPIDAEMIA
     Dosage: 10 MG, QD
     Dates: start: 20140301
  10. PRAZOSIN HYDROCHLORIDE [Concomitant]
     Indication: HYPERTENSION
     Dosage: 1 MG, QD
     Route: 048
     Dates: start: 20120601, end: 20140319
  11. PRAZOSIN HYDROCHLORIDE [Concomitant]
     Dosage: 1 MG, QD
     Route: 048
     Dates: start: 20140321
  12. ACYCLOVIR [Concomitant]
     Indication: PROPHYLAXIS
     Dosage: 400 MG, BID
     Dates: start: 20140318, end: 20140428
  13. RESPRIM FORTE [Concomitant]
     Indication: ANTIFUNGAL PROPHYLAXIS
     Dosage: 500 MG, QD
     Dates: start: 20140318
  14. FUROSEMIDE [Concomitant]
     Indication: OEDEMA PERIPHERAL
     Dosage: 40 MG, QD
     Dates: start: 20140323
  15. COLOXYL WITH SENNA [Concomitant]
     Indication: CONSTIPATION
     Dosage: 2 DF, BID
     Dates: start: 20140325
  16. LACTULOSE [Concomitant]
     Indication: CONSTIPATION
     Dosage: 15 ML, BID
     Dates: start: 20140325
  17. TEMAZEPAM [Concomitant]
     Indication: INSOMNIA
     Dosage: 10 MG, PRN
     Dates: start: 20140318

REACTIONS (1)
  - Cardiac failure [Recovered/Resolved]
